FAERS Safety Report 7018805-X (Version None)
Quarter: 2010Q3

REPORT INFORMATION
  Report Type: 
  Country: None (occurrence: None)
  Receive Date: 20100928
  Receipt Date: 20100928
  Transmission Date: 20110219
  Serious: Yes (Other)
  Sender: FDA-Public Use
  Company Number: US-PFIZER INC-2010098484

PATIENT
  Sex: Male

DRUGS (12)
  1. DETROL LA [Suspect]
     Indication: HYPERTONIC BLADDER
     Dosage: 4 MG, 1X/DAY
     Dates: start: 20090701
  2. VESICARE [Suspect]
     Indication: HYPERTONIC BLADDER
     Dosage: 10 MG, 1X/DAY
     Route: 048
     Dates: start: 20100101
  3. VESICARE [Suspect]
     Indication: PROSTATOMEGALY
  4. FINASTERIDE [Concomitant]
     Dosage: 5 MG, UNK
     Route: 048
  5. FINASTERIDE [Concomitant]
     Route: 048
  6. MICARDIS HCT [Concomitant]
     Dosage: UNK
  7. NITROGLYCERIN [Concomitant]
     Dosage: UNK
  8. METOPROLOL [Concomitant]
     Dosage: UNK
  9. OSTEO BI-FLEX [Concomitant]
     Dosage: UNK
  10. ICAPS [Concomitant]
     Dosage: UNK
  11. NIFEDIPINE [Concomitant]
     Dosage: UNK
  12. ASPIRIN [Concomitant]
     Dosage: UNK

REACTIONS (3)
  - DRUG INEFFECTIVE [None]
  - HYPERTONIC BLADDER [None]
  - NOCTURIA [None]
